FAERS Safety Report 10177488 (Version 1)
Quarter: 2014Q2

REPORT INFORMATION
  Report Type: Spontaneous
  Country: US (occurrence: US)
  Receive Date: 20140516
  Receipt Date: 20140516
  Transmission Date: 20141212
  Serious: Yes (Other)
  Sender: FDA-Public Use
  Company Number: US-PFIZER INC-2014131036

PATIENT
  Age: 61 Year
  Sex: Female

DRUGS (1)
  1. LINCOMYCIN HCL [Suspect]
     Indication: TOOTH ABSCESS
     Dosage: 500 MG, 3X/DAY (6.0 GM.)
     Route: 048
     Dates: start: 1968

REACTIONS (5)
  - Pseudomembranous colitis [Recovered/Resolved]
  - Asthenia [Recovered/Resolved]
  - Depression [Recovered/Resolved]
  - Pyrexia [Recovered/Resolved]
  - Weight decreased [Recovered/Resolved]
